FAERS Safety Report 8249690-6 (Version None)
Quarter: 2012Q2

REPORT INFORMATION
  Report Type: 
  Country: None (occurrence: None)
  Receive Date: 20120402
  Receipt Date: 20120322
  Transmission Date: 20120825
  Serious: Yes (Other)
  Sender: FDA-Public Use
  Company Number: US-BRISTOL-MYERS SQUIBB COMPANY-16471682

PATIENT
  Age: 65 Year
  Sex: Male
  Weight: 102 kg

DRUGS (3)
  1. ERBITUX [Suspect]
     Indication: HEAD AND NECK CANCER
     Dosage: THERAPY ON MAR12,INF SCHEDULED FOR 23MAR2012
     Dates: start: 20120301
  2. LIPOIC ACID [Concomitant]
  3. VITAMIN B-12 [Concomitant]
     Route: 060

REACTIONS (3)
  - PARAESTHESIA [None]
  - FEELING ABNORMAL [None]
  - SKIN FISSURES [None]
